FAERS Safety Report 9941296 (Version 2)
Quarter: 2014Q1

REPORT INFORMATION
  Report Type: Report from Study
  Country: US (occurrence: US)
  Receive Date: 20140303
  Receipt Date: 20140303
  Transmission Date: 20141002
  Serious: No
  Sender: FDA-Public Use
  Company Number: US-ABBVIE-12P-163-0945898-00

PATIENT
  Age: 63 Year
  Sex: Male
  Weight: 73.55 kg

DRUGS (16)
  1. HUMIRA [Suspect]
     Indication: PSORIATIC ARTHROPATHY
     Dates: start: 201012, end: 201205
  2. ARTHROTEC [Suspect]
     Indication: PRODUCT USED FOR UNKNOWN INDICATION
     Dates: start: 20120522
  3. CELEBREX [Suspect]
     Indication: PRODUCT USED FOR UNKNOWN INDICATION
  4. COUMADIN [Suspect]
     Indication: PRODUCT USED FOR UNKNOWN INDICATION
  5. ASA [Concomitant]
     Indication: CARDIAC DISORDER
     Dosage: 325MG DAILY
     Route: 048
  6. BYSTOLIC [Concomitant]
     Indication: PRODUCT USED FOR UNKNOWN INDICATION
     Dosage: 10MG DAILY
     Route: 048
     Dates: start: 201112
  7. COUMADIN [Concomitant]
     Indication: CARDIAC DISORDER
     Dosage: 2MG TO 5MG DEPENDING ON INR LABS
     Dates: start: 201112, end: 201205
  8. COUMADIN [Concomitant]
     Indication: ANTICOAGULANT THERAPY
  9. DIGOXIN [Concomitant]
     Indication: CARDIAC DISORDER
     Route: 048
  10. CADUET [Concomitant]
     Indication: BLOOD PRESSURE ABNORMAL
     Dates: start: 2005
  11. CADUET [Concomitant]
     Indication: BLOOD CHOLESTEROL ABNORMAL
  12. LASIX [Concomitant]
     Indication: PRODUCT USED FOR UNKNOWN INDICATION
     Dosage: 20MG EVERY OTHER DAY
     Route: 048
  13. METHOTREXATE [Concomitant]
     Indication: PSORIATIC ARTHROPATHY
     Dosage: 10 TABLETS WEEKLY (5 TABS IN MORNING + 5 TABS IN EVENING)
     Route: 048
  14. CELEBREX [Concomitant]
     Indication: PRODUCT USED FOR UNKNOWN INDICATION
     Dosage: 200MG DAILY
     Route: 048
     Dates: end: 20120601
  15. ARTHROTEC [Concomitant]
     Indication: PSORIATIC ARTHROPATHY
     Dates: end: 20120601
  16. EFFIENT [Concomitant]
     Indication: CORONARY ARTERIAL STENT INSERTION
     Dosage: 10MG DAILY
     Route: 048
     Dates: start: 201205

REACTIONS (3)
  - Abdominal pain upper [Recovered/Resolved]
  - Drug ineffective [Not Recovered/Not Resolved]
  - Arthralgia [Recovering/Resolving]
